FAERS Safety Report 12337138 (Version 1)
Quarter: 2016Q2

REPORT INFORMATION
  Report Type: Spontaneous
  Country: US (occurrence: None)
  Receive Date: 20160504
  Receipt Date: 20160504
  Transmission Date: 20160815
  Serious: No
  Sender: FDA-Public Use
  Company Number: None

PATIENT
  Age: 57 Year
  Sex: Female
  Weight: 82.1 kg

DRUGS (9)
  1. FISH OIL [Concomitant]
     Active Substance: FISH OIL
  2. HYDROCHLOROTHIAZIDE. [Concomitant]
     Active Substance: HYDROCHLOROTHIAZIDE
  3. VITAMINS [Concomitant]
     Active Substance: VITAMINS
  4. FLAX AND BORAGE OIL W.OMEGA [Concomitant]
  5. ATENOLOL. [Concomitant]
     Active Substance: ATENOLOL
  6. DOXYCYCLINE. [Concomitant]
     Active Substance: DOXYCYCLINE
  7. ERYTHROMYCIN OPTHALMIC OINTMENT USP, 05% AKORN [Suspect]
     Active Substance: ERYTHROMYCIN
     Indication: OCULAR HYPERAEMIA
     Dosage: 3.5G (1/8 OZ)?APPLY TO EYE NIGHTLY AS NEEDED?DIRECTLY ON EYE BALL
     Route: 047
     Dates: start: 20150227, end: 20150327
  8. ERYTHROMYCIN OPTHALMIC OINTMENT USP, 05% AKORN [Suspect]
     Active Substance: ERYTHROMYCIN
     Indication: EYE SWELLING
     Dosage: 3.5G (1/8 OZ)?APPLY TO EYE NIGHTLY AS NEEDED?DIRECTLY ON EYE BALL
     Route: 047
     Dates: start: 20150227, end: 20150327
  9. AMLODIPINE BESYLATE. [Concomitant]
     Active Substance: AMLODIPINE BESYLATE

REACTIONS (3)
  - Eye swelling [None]
  - Ocular hyperaemia [None]
  - Condition aggravated [None]
